FAERS Safety Report 14783552 (Version 3)
Quarter: 2018Q2

REPORT INFORMATION
  Report Type: Spontaneous
  Country: US (occurrence: US)
  Receive Date: 20180420
  Receipt Date: 20180523
  Transmission Date: 20180711
  Serious: Yes (Death, Hospitalization)
  Sender: FDA-Public Use
  Company Number: US-JNJFOC-20180423152

PATIENT
  Sex: Male

DRUGS (14)
  1. LORAZEPAM. [Concomitant]
     Active Substance: LORAZEPAM
  2. IMBRUVICA [Suspect]
     Active Substance: IBRUTINIB
     Indication: NON-HODGKIN^S LYMPHOMA
     Route: 065
     Dates: start: 20180220, end: 2018
  3. CITALOPRAM [Concomitant]
     Active Substance: CITALOPRAM HYDROBROMIDE
  4. ATORVASTATIN [Concomitant]
     Active Substance: ATORVASTATIN
  5. DONEPEZIL. [Concomitant]
     Active Substance: DONEPEZIL
  6. HUMALOG [Concomitant]
     Active Substance: INSULIN LISPRO
  7. ASCORBIC ACID. [Concomitant]
     Active Substance: ASCORBIC ACID
  8. AGGRENOX [Concomitant]
     Active Substance: ASPIRIN\DIPYRIDAMOLE
  9. MULTIVITAMINS [Concomitant]
     Active Substance: VITAMINS
  10. METFORMIN [Concomitant]
     Active Substance: METFORMIN HYDROCHLORIDE
  11. VITAMIN D3 [Concomitant]
     Active Substance: CHOLECALCIFEROL
  12. GABAPENTIN. [Concomitant]
     Active Substance: GABAPENTIN
  13. GLIMEPIRIDE. [Concomitant]
     Active Substance: GLIMEPIRIDE
  14. FOLIC ACID. [Concomitant]
     Active Substance: FOLIC ACID

REACTIONS (3)
  - Viral infection [Not Recovered/Not Resolved]
  - Death [Fatal]
  - Hypotension [Not Recovered/Not Resolved]
